FAERS Safety Report 7005071-4 (Version None)
Quarter: 2010Q3

REPORT INFORMATION
  Report Type: 
  Country: None (occurrence: None)
  Receive Date: 20100921
  Receipt Date: 20100909
  Transmission Date: 20110219
  Serious: Yes (Hospitalization, Other)
  Sender: FDA-Public Use
  Company Number: JP-JNJFOC-20100904764

PATIENT
  Age: 52 Year
  Sex: Male

DRUGS (4)
  1. HALOPERIDOL [Suspect]
     Indication: DELUSION
     Route: 065
  2. HALOPERIDOL [Suspect]
     Indication: HALLUCINATION
     Route: 065
  3. CHLORPROMAZINE [Suspect]
     Indication: DELUSION
     Route: 065
  4. CHLORPROMAZINE [Suspect]
     Indication: HALLUCINATION
     Route: 065

REACTIONS (3)
  - DELUSION [None]
  - HALLUCINATION [None]
  - TORTICOLLIS [None]
